FAERS Safety Report 13285381 (Version 1)
Quarter: 2017Q1

REPORT INFORMATION
  Report Type: Spontaneous
  Country: US (occurrence: US)
  Receive Date: 20170301
  Receipt Date: 20170301
  Transmission Date: 20170428
  Serious: Yes (Hospitalization)
  Sender: FDA-Public Use
  Company Number: None

PATIENT
  Age: 51 Year
  Sex: Male
  Weight: 58.2 kg

DRUGS (1)
  1. SULFAMETHOXAZOLE/ TRIMETHOPRIM [Suspect]
     Active Substance: SULFAMETHOXAZOLE\TRIMETHOPRIM
     Indication: ANTIFUNGAL PROPHYLAXIS
     Route: 048
     Dates: start: 20160220, end: 20160222

REACTIONS (4)
  - Acute kidney injury [None]
  - Hyperkalaemia [None]
  - Clostridium difficile infection [None]
  - Myalgia [None]

NARRATIVE: CASE EVENT DATE: 20160222
